FAERS Safety Report 7487796-X (Version None)
Quarter: 2011Q2

REPORT INFORMATION
  Report Type: 
  Country: None (occurrence: None)
  Receive Date: 20110518
  Receipt Date: 20110516
  Transmission Date: 20111010
  Serious: Yes (Death, Hospitalization)
  Sender: FDA-Public Use
  Company Number: PHHO2011HU04150

PATIENT
  Age: 23 Year
  Sex: Male
  Weight: 72 kg

DRUGS (4)
  1. SERTRALINE HYDROCHLORIDE [Concomitant]
     Indication: DEPRESSION
     Dosage: UNK
     Dates: start: 20101005
  2. TEGRETOL [Suspect]
     Indication: EPILEPSY
     Dosage: 400 MG, BID
     Route: 048
     Dates: start: 20100505
  3. KEPPRA [Concomitant]
     Indication: EPILEPSY
     Dosage: UNK
     Route: 048
  4. PREGABALIN [Concomitant]
     Indication: EPILEPSY
     Dosage: CODE NOT BROKEN
     Route: 048

REACTIONS (11)
  - ACUTE RESPIRATORY DISTRESS SYNDROME [None]
  - PULMONARY FUNCTION TEST DECREASED [None]
  - COMPLETED SUICIDE [None]
  - PYREXIA [None]
  - POISONING [None]
  - COMA [None]
  - OXYGEN SATURATION DECREASED [None]
  - BRAIN INJURY [None]
  - CONVULSION [None]
  - HAEMOPHILUS INFECTION [None]
  - PNEUMONIA [None]
